FAERS Safety Report 8337148-5 (Version None)
Quarter: 2012Q2

REPORT INFORMATION
  Report Type: 
  Country: None (occurrence: None)
  Receive Date: 20120504
  Receipt Date: 20120502
  Transmission Date: 20120825
  Serious: Yes (Death, Hospitalization, Other)
  Sender: FDA-Public Use
  Company Number: PHFR2010GB02163

PATIENT
  Sex: Female

DRUGS (4)
  1. CLOZARIL [Suspect]
     Dosage: UNK UKN, UNK
     Route: 048
  2. ZUCLOPENTHIXOL [Concomitant]
     Dosage: 10 MG, BID
  3. CLOZARIL [Suspect]
     Indication: SCHIZOPHRENIA
     Dosage: UNK UKN, UNK
     Route: 048
     Dates: start: 19980326, end: 20100922
  4. ZUCLOPENTHIXOL [Concomitant]
     Dosage: 20 MG, BID
     Dates: start: 20100929

REACTIONS (13)
  - PAIN [None]
  - NEUTROPHIL COUNT DECREASED [None]
  - SCHIZOPHRENIA [None]
  - MALAISE [None]
  - HYPOPHAGIA [None]
  - WHITE BLOOD CELL COUNT DECREASED [None]
  - MENTAL DISORDER [None]
  - BREAST CANCER METASTATIC [None]
  - METASTASES TO NECK [None]
  - SUICIDAL IDEATION [None]
  - METASTASIS [None]
  - ASTHENIA [None]
  - DIZZINESS [None]
